FAERS Safety Report 10706599 (Version 1)
Quarter: 2015Q1

REPORT INFORMATION
  Report Type: Spontaneous
  Country: US (occurrence: None)
  Receive Date: 20150109
  Receipt Date: 20150109
  Transmission Date: 20150721
  Serious: Yes (Hospitalization)
  Sender: FDA-Public Use
  Company Number: US-2015VAL000001

PATIENT
  Age: 46 Year
  Sex: Female

DRUGS (3)
  1. PHENETHYLAMINE (PHENETHYLAMINE) [Suspect]
     Active Substance: PHENETHYLAMINE
     Indication: DEPRESSION
     Dosage: SINGLE
  2. LITHIUM [Suspect]
     Active Substance: LITHIUM CARBONATE
     Indication: DEPRESSION
  3. ISOCARBOXAZID [Suspect]
     Active Substance: ISOCARBOXAZID
     Indication: DEPRESSION
     Dosage: IN TWO DIVIDED DOSES

REACTIONS (7)
  - Cardiac failure congestive [None]
  - Mitral valve incompetence [None]
  - Serotonin syndrome [None]
  - Stress cardiomyopathy [None]
  - Tricuspid valve incompetence [None]
  - Pulmonary hypertension [None]
  - Hypotension [None]
